FAERS Safety Report 14311397 (Version 1)
Quarter: 2017Q4

REPORT INFORMATION
  Report Type: Spontaneous
  Country: US (occurrence: US)
  Receive Date: 20171221
  Receipt Date: 20171221
  Transmission Date: 20180321
  Serious: No
  Sender: FDA-Public Use
  Company Number: US-NOVEN PHARMACEUTICALS, INC.-US2017000829

PATIENT

DRUGS (4)
  1. ESTRACE [Concomitant]
     Active Substance: ESTRADIOL
  2. MINIVELLE [Suspect]
     Active Substance: ESTRADIOL
     Dosage: APPLIED 4 PATCHES OF 0.1 MG AT A TIME, EVERY 72 YEARS
     Route: 062
  3. MINIVELLE [Suspect]
     Active Substance: ESTRADIOL
     Indication: INFERTILITY FEMALE
     Dosage: UNK, UNKNOWN
     Route: 062
  4. PROGESTERONE. [Concomitant]
     Active Substance: PROGESTERONE
     Indication: IN VITRO FERTILISATION

REACTIONS (4)
  - Wrong technique in product usage process [Not Recovered/Not Resolved]
  - Prescribed overdose [Not Recovered/Not Resolved]
  - No adverse event [Unknown]
  - Off label use [Unknown]
